FAERS Safety Report 5690073-0 (Version None)
Quarter: 2008Q2

REPORT INFORMATION
  Report Type: 
  Country: None (occurrence: None)
  Receive Date: 20080401
  Receipt Date: 20080324
  Transmission Date: 20081010
  Serious: Yes (Other)
  Sender: FDA-Public Use
  Company Number: PHHY2008JP03702

PATIENT
  Age: 70 Year
  Sex: Female

DRUGS (6)
  1. FAMOTIDINE [Concomitant]
     Dosage: 20 MG
     Route: 048
  2. ULCERLMIN [Concomitant]
     Dosage: 3 G
     Route: 048
  3. RIZE [Concomitant]
     Dosage: 5 MG
     Route: 048
  4. ASTAT [Concomitant]
     Route: 061
  5. SUNRYTHM [Concomitant]
     Route: 048
  6. LAMISIL [Suspect]
     Indication: ONYCHOMYCOSIS
     Dosage: UNK, UNK
     Route: 048
     Dates: start: 20080306, end: 20080307

REACTIONS (1)
  - DEAFNESS BILATERAL [None]
